FAERS Safety Report 16206361 (Version 1)
Quarter: 2019Q2

REPORT INFORMATION
  Report Type: Spontaneous
  Country: SE (occurrence: SE)
  Receive Date: 20190417
  Receipt Date: 20190417
  Transmission Date: 20190711
  Serious: Yes (Hospitalization)
  Sender: FDA-Public Use
  Company Number: SE-TEVA-2019-SE-1038814

PATIENT
  Age: 73 Year
  Sex: Female

DRUGS (1)
  1. ZOLEDRONIC ACID (ANHYDROUS) [Suspect]
     Active Substance: ZOLEDRONIC ACID ANHYDROUS
     Indication: OSTEOPOROSIS
     Dosage: 5MG/100ML ENGANGSDOS
     Route: 042
     Dates: start: 20190313

REACTIONS (2)
  - Dyspnoea [Not Recovered/Not Resolved]
  - Musculoskeletal pain [Not Recovered/Not Resolved]

NARRATIVE: CASE EVENT DATE: 20190313
